FAERS Safety Report 22133794 (Version 1)
Quarter: 2023Q1

REPORT INFORMATION
  Report Type: Report from Study
  Country: US (occurrence: None)
  Receive Date: 20230324
  Receipt Date: 20230324
  Transmission Date: 20230418
  Serious: Yes (Death, Other)
  Sender: FDA-Public Use
  Company Number: 2023A069459

PATIENT
  Age: 48 Year
  Sex: Female

DRUGS (1)
  1. LYNPARZA [Suspect]
     Active Substance: OLAPARIB
     Indication: Breast cancer female
     Route: 048
     Dates: start: 20230125

REACTIONS (7)
  - Death [Fatal]
  - Malignant neoplasm progression [Unknown]
  - Neuropathy peripheral [Unknown]
  - Gait inability [Unknown]
  - Fall [Unknown]
  - Pleural effusion [Unknown]
  - Pneumonia [Unknown]

NARRATIVE: CASE EVENT DATE: 20230317
